FAERS Safety Report 10517650 (Version 2)
Quarter: 2014Q4

REPORT INFORMATION
  Report Type: Spontaneous
  Country: BR (occurrence: BR)
  Receive Date: 20141014
  Receipt Date: 20141014
  Transmission Date: 20150528
  Serious: Yes (Other)
  Sender: FDA-Public Use
  Company Number: BR-ABBVIE-14P-020-1235729-00

PATIENT
  Age: 33 Year
  Sex: Female
  Weight: 77.3 kg

DRUGS (8)
  1. MICRODIOL [Concomitant]
     Active Substance: DESOGESTREL\ETHINYL ESTRADIOL
     Indication: MENSTRUAL DISORDER
     Route: 048
     Dates: start: 20010101
  2. OMEPRAZOLE. [Concomitant]
     Active Substance: OMEPRAZOLE
     Indication: GASTRIC DISORDER
     Route: 048
     Dates: start: 20080601
  3. SPIRONOLACTONE. [Concomitant]
     Active Substance: SPIRONOLACTONE
     Indication: ELECTROLYTE SUBSTITUTION THERAPY
     Route: 048
     Dates: start: 20140201
  4. HUMIRA [Suspect]
     Active Substance: ADALIMUMAB
     Indication: CROHN^S DISEASE
     Route: 058
     Dates: start: 201310
  5. NORTRIPTYLINE HYDROCHLORIDE. [Concomitant]
     Active Substance: NORTRIPTYLINE HYDROCHLORIDE
     Indication: ANTIDEPRESSANT THERAPY
     Route: 048
     Dates: start: 20080601
  6. AZATHIOPRINE. [Concomitant]
     Active Substance: AZATHIOPRINE
     Indication: CROHN^S DISEASE
     Route: 048
     Dates: start: 20080601
  7. ALPRAZOLAM. [Concomitant]
     Active Substance: ALPRAZOLAM
     Indication: SLEEP DISORDER THERAPY
     Route: 048
     Dates: start: 20080601
  8. OS-CAL [Concomitant]
     Indication: MINERAL SUPPLEMENTATION
     Route: 048
     Dates: start: 20080601

REACTIONS (6)
  - Colostomy [Unknown]
  - Impaired healing [Not Recovered/Not Resolved]
  - Intestinal obstruction [Recovered/Resolved]
  - Abdominal adhesions [Recovered/Resolved]
  - Alopecia [Not Recovered/Not Resolved]
  - Acute abdomen [Unknown]

NARRATIVE: CASE EVENT DATE: 20140502
